FAERS Safety Report 8601165-8 (Version None)
Quarter: 2012Q3

REPORT INFORMATION
  Report Type: 
  Country: None (occurrence: None)
  Receive Date: 20120817
  Receipt Date: 20120816
  Transmission Date: 20120928
  Serious: Yes (Life-Threatening, Hospitalization)
  Sender: FDA-Public Use
  Company Number: PHHY2012CZ055894

PATIENT
  Age: 60 Year
  Sex: Female

DRUGS (15)
  1. VINCRISTINE [Suspect]
     Dosage: UNK
     Dates: start: 20120625
  2. DEXAMETHASONE [Concomitant]
     Dosage: UNK UKN, UNK
  3. DEGAN [Concomitant]
     Dosage: UNK UKN, UNK
  4. IMATINIB MESYLATE [Suspect]
     Dosage: UNK UKN, UNK
  5. ASPARAGINASE [Suspect]
     Dosage: UNK
     Dates: start: 20120625
  6. PIPERACILLIN AND TAZOBACTAM [Concomitant]
     Dosage: UNK UKN, UNK
  7. MYKOFUNGIN [Concomitant]
     Dosage: UNK UKN, UNK
  8. ZOLOFT [Concomitant]
     Dosage: UNK UKN, UNK
  9. TPN [Concomitant]
     Dosage: UNK UKN, UNK
  10. NEUPOGEN [Concomitant]
  11. CYCLOPHOSPHAMIDE [Concomitant]
     Dosage: UNK UKN, UNK
  12. TORECAN [Concomitant]
     Dosage: UNK UKN, UNK
  13. IMATINIB MESYLATE [Suspect]
     Indication: ACUTE LYMPHOCYTIC LEUKAEMIA
     Dosage: 600 MG, DAILY
     Dates: start: 20120611, end: 20120628
  14. SULFAMETHOXAZOLE AND TRIMETHOPRIM [Concomitant]
     Dosage: UNK UKN, UNK
  15. OMEPRAZOLE [Concomitant]
     Dosage: UNK UKN, UNK

REACTIONS (9)
  - FULL BLOOD COUNT DECREASED [None]
  - HEADACHE [None]
  - CEREBRAL HYGROMA [None]
  - GASTROINTESTINAL DISORDER [None]
  - MYOPATHY [None]
  - INTRACRANIAL PRESSURE INCREASED [None]
  - BRAIN OEDEMA [None]
  - FLUID RETENTION [None]
  - PLATELET COUNT DECREASED [None]
